FAERS Safety Report 21973567 (Version 1)
Quarter: 2023Q1

REPORT INFORMATION
  Report Type: Spontaneous
  Country: AU (occurrence: AU)
  Receive Date: 20230209
  Receipt Date: 20230209
  Transmission Date: 20230418
  Serious: Yes (Other)
  Sender: FDA-Public Use
  Company Number: None

PATIENT

DRUGS (5)
  1. NICOTINE [Suspect]
     Active Substance: NICOTINE
     Indication: Product used for unknown indication
     Dosage: UNK
     Route: 065
     Dates: end: 2019
  2. CLOZAPINE [Suspect]
     Active Substance: CLOZAPINE
     Indication: Product used for unknown indication
     Dosage: UNK
     Route: 065
     Dates: start: 20041201
  3. CLOZAPINE [Suspect]
     Active Substance: CLOZAPINE
     Dosage: 150 MG
     Route: 065
     Dates: end: 20200819
  4. CLOZAPINE [Suspect]
     Active Substance: CLOZAPINE
     Dosage: 300 MG
     Route: 048
  5. MIRTAZAPINE [Concomitant]
     Active Substance: MIRTAZAPINE

REACTIONS (20)
  - Asthenia [Unknown]
  - Atelectasis [Unknown]
  - Basophil count increased [Unknown]
  - Blood creatine phosphokinase decreased [Unknown]
  - Blood sodium decreased [Unknown]
  - C-reactive protein increased [Unknown]
  - Depressed mood [Unknown]
  - Depressive symptom [Recovering/Resolving]
  - Haematocrit decreased [Unknown]
  - Haemoglobin decreased [Unknown]
  - Hallucination, auditory [Unknown]
  - Insomnia [Unknown]
  - Intentional product misuse [Unknown]
  - Lung cancer metastatic [Not Recovered/Not Resolved]
  - Mean platelet volume decreased [Unknown]
  - Mental impairment [Recovering/Resolving]
  - Red blood cell count decreased [Unknown]
  - Salivary hypersecretion [Unknown]
  - Schizophrenia [Unknown]
  - Suicidal ideation [Unknown]

NARRATIVE: CASE EVENT DATE: 20200713
